FAERS Safety Report 4430855-6 (Version None)
Quarter: 2004Q3

REPORT INFORMATION
  Report Type: 
  Country: None (occurrence: None)
  Receive Date: 20040823
  Receipt Date: 20040813
  Transmission Date: 20050211
  Serious: Yes (Other)
  Sender: FDA-Public Use
  Company Number: 377251

PATIENT
  Age: 67 Year
  Sex: Female

DRUGS (1)
  1. COREG [Suspect]
     Indication: HYPERTENSION
     Route: 048
     Dates: start: 20040415

REACTIONS (1)
  - HYPOTENSION [None]
